FAERS Safety Report 22370815 (Version 1)
Quarter: 2023Q2

REPORT INFORMATION
  Report Type: Spontaneous
  Country: KR (occurrence: KR)
  Receive Date: 20230526
  Receipt Date: 20230526
  Transmission Date: 20230721
  Serious: Yes (Other)
  Sender: FDA-Public Use
  Company Number: KR-SUN PHARMACEUTICAL INDUSTRIES LTD-2023RR-388911

PATIENT
  Age: 43 Year
  Sex: Female

DRUGS (4)
  1. ASPIRIN [Suspect]
     Active Substance: ASPIRIN
     Indication: Vascular procedure complication
     Dosage: UNK
     Route: 065
  2. HYALURONIC ACID [Suspect]
     Active Substance: HYALURONIC ACID
     Indication: Dermal filler injection
     Dosage: UNK
     Route: 065
  3. HYALURONIDASE [Suspect]
     Active Substance: HYALURONIDASE
     Indication: Dermal filler injection
     Dosage: UNK
     Route: 065
  4. NITROGLYCERIN [Suspect]
     Active Substance: NITROGLYCERIN
     Indication: Vascular procedure complication
     Dosage: UNK
     Route: 060

REACTIONS (4)
  - Drug ineffective [Unknown]
  - Therapeutic product effect incomplete [Unknown]
  - Anxiety [Unknown]
  - Vascular injury [Unknown]
